FAERS Safety Report 11222619 (Version 1)
Quarter: 2015Q2

REPORT INFORMATION
  Report Type: Spontaneous
  Country: US (occurrence: US)
  Receive Date: 20150626
  Receipt Date: 20150626
  Transmission Date: 20150821
  Serious: Yes (Hospitalization, Other)
  Sender: FDA-Public Use
  Company Number: US-GLAXOSMITHKLINE-US2015GSK089029

PATIENT
  Sex: Female

DRUGS (1)
  1. FLOLAN [Suspect]
     Active Substance: EPOPROSTENOL SODIUM
     Indication: PULMONARY HYPERTENSION
     Dosage: 40 NG/KG/MIN
     Route: 042
     Dates: start: 20130314

REACTIONS (5)
  - Anaemia [Unknown]
  - Hospitalisation [Unknown]
  - Ascites [Unknown]
  - Respiratory tract infection [Unknown]
  - Diarrhoea [Unknown]
